FAERS Safety Report 7808191-7 (Version None)
Quarter: 2011Q4

REPORT INFORMATION
  Report Type: 
  Country: None (occurrence: None)
  Receive Date: 20111011
  Receipt Date: 20111006
  Transmission Date: 20120403
  Serious: Yes (Death, Life-Threatening, Hospitalization)
  Sender: FDA-Public Use
  Company Number: DE-ASTRAZENECA-2011SE46370

PATIENT
  Age: 25209 Day
  Sex: Male
  Weight: 78 kg

DRUGS (5)
  1. CLOPIDOGREL [Concomitant]
  2. BRILIQUE [Suspect]
     Indication: INTRACARDIAC THROMBUS
     Route: 048
     Dates: end: 20110713
  3. PHENPROCOUMON [Concomitant]
  4. BRILIQUE [Suspect]
     Indication: ATRIAL FIBRILLATION
     Route: 048
     Dates: end: 20110713
  5. ASPIRIN [Concomitant]
     Route: 048
     Dates: end: 20110713

REACTIONS (3)
  - MULTI-ORGAN FAILURE [None]
  - HAEMORRHAGE [None]
  - DEVICE DISLOCATION [None]
